FAERS Safety Report 4421151-1 (Version None)
Quarter: 2004Q3

REPORT INFORMATION
  Report Type: 
  Country: None (occurrence: None)
  Receive Date: 20040804
  Receipt Date: 20040722
  Transmission Date: 20050211
  Serious: Yes (Hospitalization, Other)
  Sender: FDA-Public Use
  Company Number: 2004050250

PATIENT
  Age: 73 Year
  Sex: Male

DRUGS (9)
  1. ATORVASTATIN CALCIUM [Suspect]
     Indication: ILL-DEFINED DISORDER
     Dosage: ORAL
     Route: 048
  2. AMLODIPINE [Suspect]
     Indication: ILL-DEFINED DISORDER
     Dosage: ORAL
     Route: 048
  3. FUROSEMIDE [Concomitant]
  4. INSULIN HUMAN ZINC SUSPENSION (INSULIN HUMAN ZINC SUSPENSION) [Concomitant]
  5. OMEPRAZOLE [Concomitant]
  6. ZOLOFT [Suspect]
     Indication: ILL-DEFINED DISORDER
     Dosage: ORAL
     Route: 048
  7. ACETYLSALICYLIC ACID SRT [Suspect]
     Dosage: ORAL
     Route: 048
  8. LISINOPRIL [Suspect]
     Dosage: ORAL
     Route: 048
  9. BISOPROLOL FUMARATE [Suspect]
     Dosage: ORAL
     Route: 048

REACTIONS (4)
  - ACUTE PULMONARY OEDEMA [None]
  - ACUTE RESPIRATORY DISTRESS SYNDROME [None]
  - BRONCHIAL INFECTION [None]
  - INTERSTITIAL LUNG DISEASE [None]
